FAERS Safety Report 6993275-6 (Version None)
Quarter: 2010Q3

REPORT INFORMATION
  Report Type: 
  Country: None (occurrence: None)
  Receive Date: 20100917
  Receipt Date: 20100201
  Transmission Date: 20110219
  Serious: No
  Sender: FDA-Public Use
  Company Number: US-ASTRAZENECA-2009UW20499

PATIENT
  Age: 577 Month
  Sex: Female
  Weight: 90.7 kg

DRUGS (3)
  1. SEROQUEL [Suspect]
     Indication: DEPRESSION
     Route: 048
     Dates: start: 20070201, end: 20071201
  2. SEROQUEL [Suspect]
     Indication: BIPOLAR DISORDER
     Route: 048
     Dates: start: 20070201, end: 20071201
  3. JANUMET [Concomitant]
     Dates: start: 20070201

REACTIONS (3)
  - ARTHROPATHY [None]
  - GLYCOSURIA [None]
  - TYPE 2 DIABETES MELLITUS [None]
